FAERS Safety Report 8814169 (Version 2)
Quarter: 2012Q4

REPORT INFORMATION
  Report Type: Spontaneous
  Country: JP (occurrence: None)
  Receive Date: 20120925
  Receipt Date: 20121010
  Transmission Date: 20130627
  Serious: Yes (Other)
  Sender: FDA-Public Use
  Company Number: JP-2012-16303

PATIENT
  Age: 79 Year
  Sex: Male
  Weight: 50 kg

DRUGS (8)
  1. SAMSCA (TOLVAPTAN) TABLET [Suspect]
     Indication: FLUID RETENTION
     Dosage: 3.75 mg milligram(s), qam, Oral
     Dates: start: 20120611
  2. SAMSCA (TOLVAPTAN) TABLET [Suspect]
     Indication: FLUID RETENTION
     Dosage: 15 mg milligram(s), qam, oral
     Dates: end: 20120625
  3. RENIVACE (ENALAPRIL MALEATE) [Concomitant]
  4. SELARA (EPLERENONE) [Concomitant]
  5. LASIX (FUROSEMIDE) [Concomitant]
  6. PIMOBENDAN (PIMOBENDAN) [Concomitant]
  7. WARFARIN (WARFARIN SODIUM) [Concomitant]
  8. FLUITRAN (TRICHLOMETHIAZIDE) [Concomitant]

REACTIONS (5)
  - Blood pressure decreased [None]
  - Thirst [None]
  - Cardiac failure congestive [None]
  - Nausea [None]
  - Cardiac failure [None]
